FAERS Safety Report 17723406 (Version 3)
Quarter: 2020Q2

REPORT INFORMATION
  Report Type: Report from Study
  Country: IN (occurrence: IN)
  Receive Date: 20200429
  Receipt Date: 20200513
  Transmission Date: 20200714
  Serious: Yes (Other)
  Sender: FDA-Public Use
  Company Number: NVSC2019IN081604

PATIENT
  Age: 58 Year
  Sex: Female
  Weight: 70 kg

DRUGS (5)
  1. RYZODEG INSULIN [Concomitant]
     Indication: DIABETES MELLITUS
     Dosage: 1 DF, BID (1-0-1,PRE MEAL)
     Route: 058
     Dates: start: 2010
  2. GLIMEPIRIDE MV 1 [Concomitant]
     Indication: DIABETES MELLITUS
     Dosage: 1 DF, BID, (1-0-1,PRE MEAL)
     Route: 048
  3. METFORMIN HYDROCHLORIDE. [Concomitant]
     Active Substance: METFORMIN HYDROCHLORIDE
     Indication: DIABETES MELLITUS
     Dosage: UNK
     Route: 048
  4. GALVUS MET [Suspect]
     Active Substance: METFORMIN HYDROCHLORIDE\VILDAGLIPTIN
     Dosage: 1 DF, BID (1-0-1)
     Route: 048
  5. GALVUS MET [Suspect]
     Active Substance: METFORMIN HYDROCHLORIDE\VILDAGLIPTIN
     Indication: DIABETES MELLITUS
     Dosage: 1 DF, BID (0-1-1), PRE-MEAL
     Route: 048
     Dates: start: 20200101

REACTIONS (34)
  - Cough [Not Recovered/Not Resolved]
  - Product supply issue [Unknown]
  - Muscle spasms [Unknown]
  - Oropharyngeal pain [Unknown]
  - Pyrexia [Unknown]
  - Fall [Unknown]
  - Blood glucose increased [Not Recovered/Not Resolved]
  - Asthenia [Unknown]
  - Sleep disorder [Not Recovered/Not Resolved]
  - Spondylitis [Unknown]
  - Nasopharyngitis [Unknown]
  - Depressed mood [Unknown]
  - Feeling abnormal [Unknown]
  - Chest pain [Not Recovered/Not Resolved]
  - Chest discomfort [Not Recovered/Not Resolved]
  - Product dose omission [Unknown]
  - Hypoglycaemia [Unknown]
  - Pain [Unknown]
  - Limb injury [Unknown]
  - Hypoaesthesia [Unknown]
  - Hyperglycaemia [Unknown]
  - Balance disorder [Unknown]
  - Hunger [Unknown]
  - Wheezing [Not Recovered/Not Resolved]
  - Glycosylated haemoglobin increased [Unknown]
  - Fatigue [Unknown]
  - Pneumonia [Not Recovered/Not Resolved]
  - Arthralgia [Unknown]
  - Hyperchlorhydria [Unknown]
  - Pain in extremity [Unknown]
  - Bronchitis [Not Recovered/Not Resolved]
  - Immune system disorder [Not Recovered/Not Resolved]
  - Dizziness [Unknown]
  - Chills [Unknown]

NARRATIVE: CASE EVENT DATE: 20200121
